FAERS Safety Report 9071959 (Version 1)
Quarter: 2013Q1

REPORT INFORMATION
  Report Type: Spontaneous
  Country: US (occurrence: US)
  Receive Date: 20130206
  Receipt Date: 20130206
  Transmission Date: 20140127
  Serious: No
  Sender: FDA-Public Use
  Company Number: US-ALLERGAN-1214586US

PATIENT
  Age: 55 Year
  Sex: Female

DRUGS (10)
  1. RESTASIS? [Suspect]
     Indication: DRY EYE
     Dosage: 2 GTT, BID
     Route: 047
     Dates: start: 20120114, end: 20120128
  2. RESTASIS? [Suspect]
     Dosage: 2 GTT, BID
     Route: 047
     Dates: start: 20110917, end: 20121019
  3. REFRESH OPTIVE [Suspect]
     Indication: EYE LUBRICATION THERAPY
     Dosage: UNK, PRN
     Route: 047
  4. GABAPENTIN [Concomitant]
     Indication: RESTLESS LEGS SYNDROME
     Dosage: UNK
     Dates: start: 2011
  5. SYNTHROID [Concomitant]
     Indication: HYPOTHYROIDISM
     Dosage: UNK
     Dates: start: 2010
  6. LITHIUM [Concomitant]
     Indication: BIPOLAR DISORDER
     Dosage: UNK
     Dates: start: 1997
  7. THYROID MEDICATION NOS [Concomitant]
     Indication: HYPOTHYROIDISM
     Dosage: UNK
  8. THYROID MEDICATION NOS [Concomitant]
     Indication: PARATHYROID DISORDER
  9. ALBUTERAL [Concomitant]
     Indication: ASTHMA
     Dosage: UNK, PRN
     Route: 055
  10. SEROQUEL                           /01270901/ [Concomitant]
     Indication: INSOMNIA
     Dosage: UNK
     Dates: start: 2007

REACTIONS (7)
  - Eyelids pruritus [Unknown]
  - Blepharitis [Unknown]
  - Eyelid exfoliation [Not Recovered/Not Resolved]
  - Erythema [Recovered/Resolved]
  - Erythema of eyelid [Unknown]
  - Erythema of eyelid [Recovered/Resolved]
  - Eyelid oedema [Unknown]
